FAERS Safety Report 9346477 (Version 2)
Quarter: 2013Q3

REPORT INFORMATION
  Report Type: Spontaneous
  Country: US (occurrence: US)
  Receive Date: 20130613
  Receipt Date: 20130705
  Transmission Date: 20140515
  Serious: Yes (Hospitalization)
  Sender: FDA-Public Use
  Company Number: US-JNJFOC-20130602603

PATIENT
  Age: 77 Year
  Sex: Male
  Weight: 79.38 kg

DRUGS (12)
  1. XARELTO [Suspect]
     Indication: CEREBROVASCULAR ACCIDENT PROPHYLAXIS
     Route: 048
  2. XARELTO [Suspect]
     Indication: CEREBROVASCULAR ACCIDENT PROPHYLAXIS
     Dosage: STRENGTH: 10 MG
     Route: 048
     Dates: start: 2012, end: 20130528
  3. XARELTO [Suspect]
     Indication: ATRIAL FIBRILLATION
     Route: 048
  4. XARELTO [Suspect]
     Indication: ATRIAL FIBRILLATION
     Dosage: STRENGTH: 10 MG
     Route: 048
     Dates: start: 2012, end: 20130528
  5. METFORMIN [Concomitant]
     Indication: DIABETES MELLITUS
     Route: 065
     Dates: end: 20130613
  6. METOPROLOL SUCCINATE [Concomitant]
     Indication: CARDIAC DISORDER
     Dosage: DOSAGE: ONCE
     Route: 065
  7. ALTACE [Concomitant]
     Indication: HYPERTENSION
     Route: 065
  8. NEURONTIN [Concomitant]
     Indication: SENSATION OF HEAVINESS
     Route: 065
  9. LIPITOR [Concomitant]
     Indication: BLOOD CHOLESTEROL INCREASED
     Route: 065
     Dates: end: 20130604
  10. AMIODARONE [Concomitant]
     Indication: ARRHYTHMIA PROPHYLAXIS
     Dosage: DOSAGE: TAKING HALF TABLET ONE DAY AND 1 TABLET NEXT DAY
     Route: 065
  11. BABY ASPIRIN [Concomitant]
     Route: 065
     Dates: start: 201305
  12. LASIX [Concomitant]
     Indication: CARDIAC FAILURE
     Route: 065
     Dates: start: 201305

REACTIONS (3)
  - Cardiac failure [Not Recovered/Not Resolved]
  - International normalised ratio increased [Recovered/Resolved]
  - Fluid retention [Not Recovered/Not Resolved]
